FAERS Safety Report 12280166 (Version 1)
Quarter: 2016Q2

REPORT INFORMATION
  Report Type: Report from Study
  Country: FR (occurrence: FR)
  Receive Date: 20160419
  Receipt Date: 20160419
  Transmission Date: 20160815
  Serious: Yes (Other)
  Sender: FDA-Public Use
  Company Number: FR-ROCHE-1563210

PATIENT

DRUGS (7)
  1. MYCOPHENOLATE MOFETIL. [Suspect]
     Active Substance: MYCOPHENOLATE MOFETIL
     Indication: FOCAL SEGMENTAL GLOMERULOSCLEROSIS
     Route: 065
  2. TACROLIMUS. [Suspect]
     Active Substance: TACROLIMUS
     Indication: FOCAL SEGMENTAL GLOMERULOSCLEROSIS
     Route: 065
  3. BASILIXIMAB [Suspect]
     Active Substance: BASILIXIMAB
     Indication: FOCAL SEGMENTAL GLOMERULOSCLEROSIS
     Route: 065
  4. RITUXIMAB [Suspect]
     Active Substance: RITUXIMAB
     Indication: FOCAL SEGMENTAL GLOMERULOSCLEROSIS
     Route: 042
  5. CYCLOSPORINE. [Suspect]
     Active Substance: CYCLOSPORINE
     Indication: FOCAL SEGMENTAL GLOMERULOSCLEROSIS
     Route: 048
  6. ANTITHYMOCYTE GLOBULIN, RABBIT [Suspect]
     Active Substance: LAPINE T-LYMPHOCYTE IMMUNE GLOBULIN
     Indication: FOCAL SEGMENTAL GLOMERULOSCLEROSIS
     Dosage: INDUCTION IMMUNOSUPPRESSIVE REGIMEN
     Route: 065
  7. CYCLOSPORINE. [Suspect]
     Active Substance: CYCLOSPORINE
     Route: 042

REACTIONS (11)
  - Pyelonephritis [Unknown]
  - Hepatitis E [Unknown]
  - Viraemia [Unknown]
  - Pneumocystis jirovecii pneumonia [Unknown]
  - Pseudomonas infection [Unknown]
  - Febrile neutropenia [Unknown]
  - Escherichia infection [Unknown]
  - Dermatophytosis [Unknown]
  - Cytomegalovirus enteritis [Unknown]
  - Colitis [Unknown]
  - Herpes simplex [Unknown]
